FAERS Safety Report 19534732 (Version 1)
Quarter: 2021Q3

REPORT INFORMATION
  Report Type: Spontaneous
  Country: DE (occurrence: DE)
  Receive Date: 20210713
  Receipt Date: 20210713
  Transmission Date: 20211014
  Serious: Yes (Other)
  Sender: FDA-Public Use
  Company Number: DE-GUERBET-DE-20210047

PATIENT
  Age: 70 Year
  Sex: Female

DRUGS (26)
  1. GADOVIST [Suspect]
     Active Substance: GADOBUTROL
     Route: 065
     Dates: start: 2010
  2. MAGNEVIST [Suspect]
     Active Substance: GADOPENTETATE DIMEGLUMINE
     Route: 065
     Dates: start: 1999
  3. MAGNEVIST [Suspect]
     Active Substance: GADOPENTETATE DIMEGLUMINE
     Route: 065
     Dates: start: 2003
  4. DOTAREM [Suspect]
     Active Substance: GADOTERATE MEGLUMINE
     Route: 065
     Dates: start: 2018, end: 2018
  5. MULTIHANCE [Suspect]
     Active Substance: GADOBENATE DIMEGLUMINE
     Dates: start: 2009
  6. PROHANCE [Suspect]
     Active Substance: GADOTERIDOL
     Indication: PRODUCT USED FOR UNKNOWN INDICATION
     Route: 065
     Dates: start: 2020
  7. MULTIHANCE [Suspect]
     Active Substance: GADOBENATE DIMEGLUMINE
     Indication: PRODUCT USED FOR UNKNOWN INDICATION
     Route: 065
     Dates: start: 2005
  8. MULTIHANCE [Suspect]
     Active Substance: GADOBENATE DIMEGLUMINE
     Dates: start: 2007
  9. MULTIHANCE [Suspect]
     Active Substance: GADOBENATE DIMEGLUMINE
     Dates: start: 2006
  10. GADOVIST [Suspect]
     Active Substance: GADOBUTROL
     Route: 065
     Dates: start: 2016
  11. MAGNEVIST [Suspect]
     Active Substance: GADOPENTETATE DIMEGLUMINE
     Route: 065
     Dates: start: 2002
  12. MAGNEVIST [Suspect]
     Active Substance: GADOPENTETATE DIMEGLUMINE
     Route: 065
     Dates: start: 2008
  13. DOTAREM [Suspect]
     Active Substance: GADOTERATE MEGLUMINE
     Indication: PRODUCT USED FOR UNKNOWN INDICATION
     Route: 065
     Dates: start: 2017, end: 2017
  14. OMNISCAN [Suspect]
     Active Substance: GADODIAMIDE
     Indication: PRODUCT USED FOR UNKNOWN INDICATION
     Route: 065
     Dates: start: 2007
  15. GADOVIST [Suspect]
     Active Substance: GADOBUTROL
     Route: 065
     Dates: start: 2012
  16. GADOVIST [Suspect]
     Active Substance: GADOBUTROL
     Route: 065
     Dates: start: 2011
  17. MAGNEVIST [Suspect]
     Active Substance: GADOPENTETATE DIMEGLUMINE
     Route: 065
     Dates: start: 2006
  18. DOTAREM [Suspect]
     Active Substance: GADOTERATE MEGLUMINE
     Route: 065
     Dates: start: 2014, end: 2014
  19. DOTAREM [Suspect]
     Active Substance: GADOTERATE MEGLUMINE
     Route: 065
     Dates: start: 2016, end: 2016
  20. GADOVIST [Suspect]
     Active Substance: GADOBUTROL
     Route: 065
     Dates: start: 2013
  21. MAGNEVIST [Suspect]
     Active Substance: GADOPENTETATE DIMEGLUMINE
     Route: 065
     Dates: start: 2001
  22. PROHANCE [Suspect]
     Active Substance: GADOTERIDOL
     Dates: start: 2021
  23. GADOVIST [Suspect]
     Active Substance: GADOBUTROL
     Indication: PRODUCT USED FOR UNKNOWN INDICATION
     Route: 065
     Dates: start: 2017
  24. MAGNEVIST [Suspect]
     Active Substance: GADOPENTETATE DIMEGLUMINE
     Indication: PRODUCT USED FOR UNKNOWN INDICATION
     Route: 065
     Dates: start: 2005
  25. MAGNEVIST [Suspect]
     Active Substance: GADOPENTETATE DIMEGLUMINE
     Route: 065
     Dates: start: 2004
  26. GADOVIST [Suspect]
     Active Substance: GADOBUTROL
     Route: 065
     Dates: start: 2015

REACTIONS (12)
  - Movement disorder [Unknown]
  - Rash [Unknown]
  - Pain in extremity [Unknown]
  - Suicidal ideation [Unknown]
  - Paraesthesia [Unknown]
  - Sleep disorder [Unknown]
  - Pain [Unknown]
  - Ocular hyperaemia [Unknown]
  - Peripheral swelling [Unknown]
  - Anxiety [Unknown]
  - Burning sensation [Unknown]
  - Depression [Unknown]
